FAERS Safety Report 8249978-9 (Version None)
Quarter: 2012Q2

REPORT INFORMATION
  Report Type: 
  Country: None (occurrence: None)
  Receive Date: 20120402
  Receipt Date: 20120319
  Transmission Date: 20120825
  Serious: Yes (Hospitalization)
  Sender: FDA-Public Use
  Company Number: BE-MYLANLABS-2012S1006174

PATIENT
  Age: 50 Year
  Sex: Female

DRUGS (3)
  1. REPAGLINIDE [Concomitant]
     Route: 065
  2. LAMOTRGINE [Suspect]
     Dosage: 75 MG/DAY
     Route: 065
  3. LAMOTRGINE [Suspect]
     Indication: INTENTIONAL OVERDOSE
     Dosage: 3.5G ESTIMATED FROM MISSING PILL COUNT
     Route: 048

REACTIONS (6)
  - INTENTIONAL OVERDOSE [None]
  - ELECTROCARDIOGRAM QRS COMPLEX PROLONGED [None]
  - SUICIDE ATTEMPT [None]
  - STUPOR [None]
  - BUNDLE BRANCH BLOCK LEFT [None]
  - SINUS TACHYCARDIA [None]
